FAERS Safety Report 9232845 (Version 1)
Quarter: 2013Q2

REPORT INFORMATION
  Report Type: Spontaneous
  Country: US (occurrence: None)
  Receive Date: 20130415
  Receipt Date: 20130415
  Transmission Date: 20140414
  Serious: Yes (Other)
  Sender: FDA-Public Use
  Company Number: None

PATIENT
  Age: 55 Year
  Sex: Male
  Weight: 113.4 kg

DRUGS (3)
  1. MELOXICAM [Suspect]
     Indication: PAIN
     Dates: start: 20130102, end: 20130116
  2. MELOXICAM [Suspect]
     Indication: INFLAMMATION
     Dates: start: 20130102, end: 20130116
  3. WARFARIN [Concomitant]

REACTIONS (5)
  - International normalised ratio increased [None]
  - Haemothorax [None]
  - Myocardial infarction [None]
  - Pulmonary thrombosis [None]
  - Total lung capacity decreased [None]
